FAERS Safety Report 6915384-X (Version None)
Quarter: 2010Q3

REPORT INFORMATION
  Report Type: 
  Country: None (occurrence: None)
  Receive Date: 20100809
  Receipt Date: 20100406
  Transmission Date: 20110219
  Serious: Yes (Other)
  Sender: FDA-Public Use
  Company Number: US-ABBOTT-10P-163-0636678-00

PATIENT
  Age: 72 Year
  Sex: Female

DRUGS (2)
  1. DEPAKOTE ER [Suspect]
     Indication: HEAD INJURY
     Dates: start: 20100403
  2. DEPAKOTE ER [Suspect]
     Indication: EPILEPSY
     Dates: start: 20100306, end: 20100403

REACTIONS (5)
  - ANXIETY [None]
  - CONVULSION [None]
  - INSOMNIA [None]
  - NERVOUSNESS [None]
  - TREMOR [None]
